FAERS Safety Report 8501814-9 (Version None)
Quarter: 2012Q3

REPORT INFORMATION
  Report Type: 
  Country: None (occurrence: None)
  Receive Date: 20120705
  Receipt Date: 20120705
  Transmission Date: 20120928
  Serious: Yes (Hospitalization)
  Sender: FDA-Public Use
  Company Number: None

PATIENT
  Age: 91 Year
  Sex: Male
  Weight: 88.7 kg

DRUGS (1)
  1. ACETAMINOPHEN/HYDROCODONE BITARTRATE [Suspect]
     Indication: PAIN
     Dosage: 1 TAB QID PO
     Route: 048
     Dates: start: 20111207, end: 20120629

REACTIONS (1)
  - MENTAL STATUS CHANGES [None]
